FAERS Safety Report 5802901-6 (Version None)
Quarter: 2008Q3

REPORT INFORMATION
  Report Type: 
  Country: None (occurrence: None)
  Receive Date: 20080703
  Receipt Date: 20080626
  Transmission Date: 20090109
  Serious: Yes (Other)
  Sender: FDA-Public Use
  Company Number: 029733

PATIENT

DRUGS (1)
  1. WARFARIN SODIUM [Suspect]
     Dosage: ORAL
     Route: 048

REACTIONS (1)
  - PULMONARY EMBOLISM [None]
